FAERS Safety Report 8991281 (Version 1)
Quarter: 2012Q4

REPORT INFORMATION
  Report Type: Report from Study
  Country: CA (occurrence: CA)
  Receive Date: 20121231
  Receipt Date: 20121231
  Transmission Date: 20130627
  Serious: Yes (Other)
  Sender: FDA-Public Use
  Company Number: CA-ROCHE-1173565

PATIENT
  Sex: Female

DRUGS (4)
  1. OMALIZUMAB [Suspect]
     Indication: ASTHMA
     Dosage: 375 mg, Q2W
     Route: 058
     Dates: start: 20080327
  2. OMALIZUMAB [Suspect]
     Dosage: 375 mg, Q2W
     Route: 058
     Dates: start: 20090622
  3. OMALIZUMAB [Suspect]
     Route: 065
     Dates: start: 20080314
  4. ALVESCO [Concomitant]
     Indication: PRODUCT USED FOR UNKNOWN INDICATION
     Dosage: UNK
     Route: 065

REACTIONS (12)
  - Rhinitis allergic [Unknown]
  - Hypersensitivity [Unknown]
  - Heart rate increased [Unknown]
  - Hypertension [Unknown]
  - Stress at work [Unknown]
  - Nasopharyngitis [Unknown]
  - Malaise [Unknown]
  - Oropharyngeal pain [Unknown]
  - Sinus headache [Unknown]
  - Headache [Unknown]
  - Seasonal allergy [Unknown]
  - Cough [Unknown]
